FAERS Safety Report 7414292-8 (Version None)
Quarter: 2011Q1

REPORT INFORMATION
  Report Type: 
  Country: None (occurrence: None)
  Receive Date: 20110302
  Receipt Date: 20101020
  Transmission Date: 20110831
  Serious: Yes (Other)
  Sender: FDA-Public Use
  Company Number: 304440

PATIENT
  Age: 52 Year
  Sex: Female

DRUGS (3)
  1. NOVOLIN N [Suspect]
     Indication: TYPE 1 DIABETES MELLITUS
     Dosage: SUBCUTANEOUS
     Route: 058
  2. CARDIZEM CD [Concomitant]
  3. NOVOLIN N [Suspect]
     Indication: TYPE 1 DIABETES MELLITUS
     Dosage: SUBCUTANEOUS
     Route: 058

REACTIONS (6)
  - DIABETES MELLITUS INADEQUATE CONTROL [None]
  - DYSPNOEA [None]
  - HYPERSENSITIVITY [None]
  - HEART RATE INCREASED [None]
  - BLOOD GLUCOSE DECREASED [None]
  - PARAESTHESIA ORAL [None]
